FAERS Safety Report 8888277 (Version 1)
Quarter: 2012Q4

REPORT INFORMATION
  Report Type: 
  Country: US (occurrence: US)
  Receive Date: 20121106
  Receipt Date: 20121106
  Transmission Date: 20130627
  Serious: No
  Sender: FDA-Public Use
  Company Number: US-PFIZER INC-2012272895

PATIENT
  Age: 48 Year
  Sex: Male
  Weight: 136 kg

DRUGS (2)
  1. VIAGRA [Suspect]
     Indication: SEXUAL DISORDER NOS
     Dosage: 100 mg, as needed
     Route: 048
     Dates: start: 2011
  2. NEXIUM [Concomitant]
     Indication: STOMACH DISCOMFORT
     Dosage: 40 mg, daily

REACTIONS (2)
  - Vomiting [Recovered/Resolved]
  - Abdominal discomfort [Recovered/Resolved]
